FAERS Safety Report 13269349 (Version 1)
Quarter: 2017Q1

REPORT INFORMATION
  Report Type: Report from Study
  Country: DE (occurrence: DE)
  Receive Date: 20170224
  Receipt Date: 20170224
  Transmission Date: 20170428
  Serious: Yes (Hospitalization)
  Sender: FDA-Public Use
  Company Number: DE-ROCHE-1827032

PATIENT
  Age: 68 Year
  Sex: Female
  Weight: 84 kg

DRUGS (51)
  1. 5-FLUOROURACIL [Suspect]
     Active Substance: FLUOROURACIL
     Indication: COLORECTAL CANCER METASTATIC
     Dosage: 1600-2400 MG/M2?MOST RECENT DOSE 888 MG ON 6/SEP/2016 AT 20:00 PRIOR TO ONSET OF INFUSION SITE EXTRA
     Route: 042
     Dates: start: 20160823
  2. LEUCOVORIN. [Suspect]
     Active Substance: LEUCOVORIN
     Dosage: MOST RECENT DOSE PRIOR TO ONSET OF PULMONARY EMBOLISM: 21/JUL/2016 AT 1500?INDUCTION PHASE
     Route: 042
     Dates: start: 20160413
  3. METFORMIN [Concomitant]
     Active Substance: METFORMIN HYDROCHLORIDE
     Route: 065
     Dates: end: 20161004
  4. BISOPROLOL [Concomitant]
     Active Substance: BISOPROLOL
     Indication: SINUS TACHYCARDIA
     Route: 065
     Dates: start: 20160610, end: 20161005
  5. IMIPRAMIN [Concomitant]
     Active Substance: IMIPRAMINE
     Route: 065
  6. METOCLOPRAMIDE. [Concomitant]
     Active Substance: METOCLOPRAMIDE
     Indication: NAUSEA
     Route: 065
     Dates: start: 20160822
  7. POTASSIUM CHLORIDE. [Concomitant]
     Active Substance: POTASSIUM CHLORIDE
     Indication: HYPOKALAEMIA
     Dosage: OTHER
     Route: 065
     Dates: start: 20160808, end: 20160810
  8. OXALIPLATIN. [Suspect]
     Active Substance: OXALIPLATIN
     Indication: COLORECTAL CANCER METASTATIC
     Dosage: MOST RECENT DOSE PRIOR TO ONSET OF PULMONARY EMBOLISM: 21/JUL/2016 AT 1500?INDUCTION PHASE
     Route: 042
     Dates: start: 20160413
  9. CARBIMAZOL [Concomitant]
     Active Substance: CARBIMAZOLE
     Route: 065
  10. CLEXANE [Concomitant]
     Active Substance: ENOXAPARIN SODIUM
     Indication: THROMBOSIS PROPHYLAXIS
     Route: 065
     Dates: start: 20160413, end: 20160417
  11. UNACID [Concomitant]
     Active Substance: AMPICILLIN SODIUM\SULBACTAM SODIUM
     Indication: URINARY TRACT INFECTION
     Route: 065
     Dates: start: 20160707, end: 20160714
  12. BISOPROLOL [Concomitant]
     Active Substance: BISOPROLOL
     Route: 065
     Dates: end: 20160609
  13. RAMIPRIL. [Concomitant]
     Active Substance: RAMIPRIL
     Route: 065
  14. VITAMIN B12 [Concomitant]
     Active Substance: CYANOCOBALAMIN
     Indication: PROPHYLAXIS
     Dosage: 1 AMPULE
     Route: 065
     Dates: start: 20160413, end: 20160721
  15. ZOLPIDEM [Concomitant]
     Active Substance: ZOLPIDEM\ZOLPIDEM TARTRATE
     Route: 065
     Dates: start: 20160623, end: 20160624
  16. ZOLPIDEM [Concomitant]
     Active Substance: ZOLPIDEM\ZOLPIDEM TARTRATE
     Route: 065
     Dates: start: 20160822, end: 20160823
  17. ZOLPIDEM [Concomitant]
     Active Substance: ZOLPIDEM\ZOLPIDEM TARTRATE
     Route: 065
     Dates: start: 20161006
  18. LASIX [Concomitant]
     Active Substance: FUROSEMIDE
     Indication: OEDEMA
     Route: 065
     Dates: start: 20161010, end: 20161012
  19. NOVALGIN [Concomitant]
     Active Substance: METAMIZOLE SODIUM
     Indication: HEADACHE
     Route: 065
     Dates: start: 20161008, end: 20161010
  20. ZOPICLON [Concomitant]
     Active Substance: ZOPICLONE
     Route: 065
     Dates: end: 20161004
  21. LEUCOVORIN. [Suspect]
     Active Substance: LEUCOVORIN
     Indication: COLORECTAL CANCER METASTATIC
     Dosage: MOST RECENT DOSE 888 MG ON 6/SEP/2016 AT 20:00 PRIOR TO ONSET OF INFUSION SITE EXTRAVASATION (5-FU)
     Route: 042
     Dates: start: 20160823
  22. BISOPROLOL [Concomitant]
     Active Substance: BISOPROLOL
     Route: 065
     Dates: start: 20161006
  23. CLEXANE [Concomitant]
     Active Substance: ENOXAPARIN SODIUM
     Indication: THROMBOSIS
     Route: 065
     Dates: start: 20160623, end: 20160710
  24. DEKRISTOL [Concomitant]
     Active Substance: CHOLECALCIFEROL
     Route: 065
  25. DEXAMETHASON [Concomitant]
     Active Substance: DEXAMETHASONE
     Route: 065
     Dates: start: 20160416, end: 20160725
  26. GRANISETRON [Concomitant]
     Active Substance: GRANISETRON
     Indication: PROPHYLAXIS OF NAUSEA AND VOMITING
     Route: 065
     Dates: start: 20160413, end: 20160721
  27. CIPROFLOXACIN. [Concomitant]
     Active Substance: CIPROFLOXACIN
     Indication: URINARY TRACT INFECTION
     Route: 065
     Dates: start: 20161007, end: 20161014
  28. ASPIRIN. [Concomitant]
     Active Substance: ASPIRIN
     Route: 065
  29. CEFUROXIM [Concomitant]
     Active Substance: CEFUROXIME
     Indication: URINARY TRACT INFECTION
     Route: 065
     Dates: start: 20160623, end: 20160628
  30. DEXAMETHASON [Concomitant]
     Active Substance: DEXAMETHASONE
     Indication: PROPHYLAXIS OF NAUSEA AND VOMITING
     Route: 065
     Dates: start: 20160413, end: 20160722
  31. DEXAMETHASON [Concomitant]
     Active Substance: DEXAMETHASONE
     Route: 065
     Dates: start: 20160415, end: 20160723
  32. ZOLPIDEM [Concomitant]
     Active Substance: ZOLPIDEM\ZOLPIDEM TARTRATE
     Route: 065
     Dates: start: 20160608, end: 20160611
  33. ZOLPIDEM [Concomitant]
     Active Substance: ZOLPIDEM\ZOLPIDEM TARTRATE
     Route: 065
     Dates: start: 20160427, end: 20160427
  34. NITROGYLCERINE [Concomitant]
     Indication: HYPERTENSION
     Dosage: OTHER
     Route: 065
     Dates: start: 20161004, end: 20161005
  35. ATEZOLIZUMAB [Suspect]
     Active Substance: ATEZOLIZUMAB
     Indication: COLORECTAL CANCER METASTATIC
     Dosage: MOST RECENT DOSE 800 MG ON 05/SEP/2016 AT 15:30 PRIOR TO ONSET OF INFUSION SITE EXTRAVASATION (5-FU)
     Route: 042
     Dates: start: 20160823
  36. METFORMIN [Concomitant]
     Active Substance: METFORMIN HYDROCHLORIDE
     Route: 065
     Dates: start: 20161010
  37. ZOLPIDEM [Concomitant]
     Active Substance: ZOLPIDEM\ZOLPIDEM TARTRATE
     Route: 065
     Dates: start: 20160905, end: 20160906
  38. ZOLPIDEM [Concomitant]
     Active Substance: ZOLPIDEM\ZOLPIDEM TARTRATE
     Route: 065
     Dates: start: 20161006, end: 20161006
  39. ZOLPIDEM [Concomitant]
     Active Substance: ZOLPIDEM\ZOLPIDEM TARTRATE
     Route: 065
     Dates: start: 20161008, end: 20161008
  40. ZOLPIDEM [Concomitant]
     Active Substance: ZOLPIDEM\ZOLPIDEM TARTRATE
     Route: 065
     Dates: start: 20161016, end: 20161016
  41. 5-FLUOROURACIL [Suspect]
     Active Substance: FLUOROURACIL
     Dosage: MOST RECENT DOSE PRIOR TO ONSET OF PULMONARY EMBOLSIM 21/JUL/2016 AT 1500?INDUCTION PHASE
     Route: 042
     Dates: start: 20160413
  42. LYRICA [Concomitant]
     Active Substance: PREGABALIN
     Route: 065
  43. ZOLPIDEM [Concomitant]
     Active Substance: ZOLPIDEM\ZOLPIDEM TARTRATE
     Route: 065
     Dates: start: 20161012, end: 20161012
  44. ZOLPIDEM [Concomitant]
     Active Substance: ZOLPIDEM\ZOLPIDEM TARTRATE
     Route: 065
     Dates: start: 20161016, end: 20161019
  45. SPASMEX (GERMANY) [Concomitant]
     Indication: URINARY INCONTINENCE
     Route: 065
     Dates: start: 20161010, end: 20161010
  46. BEVACIZUMAB [Suspect]
     Active Substance: BEVACIZUMAB
     Indication: COLORECTAL CANCER METASTATIC
     Dosage: MOST RECENT DOSE 415 MG ON 05/SEP/2016 AT 16:30 INFUSION SITE EXTRAVASATION (5-FU)?MOST RECENT DOSE
     Route: 042
     Dates: start: 20160413
  47. SIMVASTATIN. [Concomitant]
     Active Substance: SIMVASTATIN
     Route: 065
  48. ZOLPIDEM [Concomitant]
     Active Substance: ZOLPIDEM\ZOLPIDEM TARTRATE
     Route: 065
     Dates: start: 20160919, end: 20160921
  49. ZOLPIDEM [Concomitant]
     Active Substance: ZOLPIDEM\ZOLPIDEM TARTRATE
     Route: 065
     Dates: start: 20161010, end: 20161010
  50. ZOLPIDEM [Concomitant]
     Active Substance: ZOLPIDEM\ZOLPIDEM TARTRATE
     Route: 065
     Dates: start: 20161014, end: 20161014
  51. NITRENDIPIN [Concomitant]
     Active Substance: NITRENDIPINE
     Indication: HYPERTENSION
     Route: 065
     Dates: start: 20161006

REACTIONS (3)
  - Pulmonary embolism [Recovered/Resolved]
  - Haemorrhage intracranial [Recovered/Resolved]
  - Infusion site extravasation [Recovered/Resolved]

NARRATIVE: CASE EVENT DATE: 20160803
